FAERS Safety Report 17791890 (Version 4)
Quarter: 2021Q1

REPORT INFORMATION
  Report Type: Spontaneous
  Country: US (occurrence: US)
  Receive Date: 20200515
  Receipt Date: 20210120
  Transmission Date: 20210419
  Serious: Yes (Disabling, Other)
  Sender: FDA-Public Use
  Company Number: US-PFIZER INC-2019383072

PATIENT
  Age: 49 Year
  Sex: Female
  Weight: 97.52 kg

DRUGS (2)
  1. LYRICA [Suspect]
     Active Substance: PREGABALIN
     Indication: NEUROPATHY PERIPHERAL
     Dosage: UNK (LOWEST DOSE)
  2. LYRICA [Suspect]
     Active Substance: PREGABALIN
     Indication: FIBROMYALGIA
     Dosage: 150 MG, 2X/DAY (ONE CAPSULE IN THE MORNING AND ONE CAPSULE AT NIGHT)
     Route: 048

REACTIONS (6)
  - Illness [Unknown]
  - Feeling abnormal [Unknown]
  - Pain [Unknown]
  - Gait inability [Unknown]
  - Malaise [Unknown]
  - Hip fracture [Unknown]
